FAERS Safety Report 9787003 (Version 2)
Quarter: 2014Q2

REPORT INFORMATION
  Report Type: Spontaneous
  Country: GB (occurrence: GB)
  Receive Date: 20131227
  Receipt Date: 20140515
  Transmission Date: 20141212
  Serious: Yes (Other)
  Sender: FDA-Public Use
  Company Number: PHHY2013GB149891

PATIENT
  Age: 61 Year
  Sex: Female

DRUGS (19)
  1. CANDESARTAN CILEXETIL [Suspect]
     Dates: start: 20131209
  2. LEVOTHYROXINE [Concomitant]
     Dates: start: 20130827
  3. RAMIPRIL [Concomitant]
     Dates: start: 20130827
  4. CETIRIZINE [Concomitant]
     Dates: start: 20130827
  5. BENDROFLUMETHIAZIDE [Concomitant]
     Dates: start: 20130827
  6. CODEINE PHOSPHATE [Concomitant]
     Dates: start: 20130827
  7. DOXYCYCLINE [Concomitant]
     Dates: start: 20130910, end: 20130924
  8. PREDNISOLONE [Concomitant]
     Dates: start: 20130912, end: 20130915
  9. SALBUTAMOL [Concomitant]
     Dates: start: 20130916, end: 20130917
  10. SALBUTAMOL [Concomitant]
     Dates: start: 20131104, end: 20131204
  11. ZOPICLONE [Concomitant]
     Dates: start: 20131004
  12. AVAMYS [Concomitant]
     Dates: start: 20131004
  13. OMEPRAZOLE [Concomitant]
     Dates: start: 20131010
  14. AMOXICILLIN [Concomitant]
     Dates: start: 20131104, end: 20131114
  15. AMOXICILLIN [Concomitant]
     Dates: start: 20131125, end: 20131205
  16. CLENIL MODULITE [Concomitant]
     Dates: start: 20131104
  17. CARBOMER [Concomitant]
     Dates: start: 20131104, end: 20131204
  18. CARBOCISTEINE [Concomitant]
     Dates: start: 20131104
  19. OXIS [Concomitant]
     Dates: start: 20131125

REACTIONS (2)
  - Anxiety [Recovered/Resolved]
  - Agitation [Recovered/Resolved]
